FAERS Safety Report 5418985-3 (Version None)
Quarter: 2007Q3

REPORT INFORMATION
  Report Type: 
  Country: None (occurrence: None)
  Receive Date: 20070817
  Receipt Date: 20070813
  Transmission Date: 20080115
  Serious: Yes (Disabling)
  Sender: FDA-Public Use
  Company Number: CH-PFIZER INC-2007066419

PATIENT
  Sex: Female

DRUGS (3)
  1. XANAX [Suspect]
     Indication: ANXIETY DISORDER
     Route: 048
  2. LAMOTRIGINE [Suspect]
     Indication: BIPOLAR DISORDER
     Route: 048
  3. REMERON [Suspect]
     Indication: DEPRESSION
     Route: 048

REACTIONS (2)
  - PHOTOSENSITIVITY REACTION [None]
  - RASH MACULO-PAPULAR [None]
